FAERS Safety Report 11714335 (Version 1)
Quarter: 2015Q4

REPORT INFORMATION
  Report Type: Spontaneous
  Country: US (occurrence: US)
  Receive Date: 20151109
  Receipt Date: 20151109
  Transmission Date: 20160304
  Serious: No
  Sender: FDA-Public Use
  Company Number: US-BAYER-2015-463576

PATIENT
  Age: 80 Year
  Sex: Female
  Weight: 43.54 kg

DRUGS (4)
  1. ONE A DAY 50 PLUS [Concomitant]
     Dosage: UNK
  2. OPINION [Concomitant]
  3. MIRALAX [Suspect]
     Active Substance: POLYETHYLENE GLYCOL 3350
     Indication: CONSTIPATION
     Dosage: 1 DF, QD
     Route: 048
  4. AMATINE [Concomitant]

REACTIONS (1)
  - Product use issue [None]
